FAERS Safety Report 12299326 (Version 12)
Quarter: 2018Q4

REPORT INFORMATION
  Report Type: Report from Study
  Country: AU (occurrence: AU)
  Receive Date: 20160425
  Receipt Date: 20181018
  Transmission Date: 20190204
  Serious: Yes (Hospitalization, Other)
  Sender: FDA-Public Use
  Company Number: AU-SA-2016SA040173

PATIENT
  Age: 54 Year
  Sex: Male
  Weight: 57.2 kg

DRUGS (30)
  1. CALCITRIOL. [Concomitant]
     Active Substance: CALCITRIOL
     Dosage: .25 UG,QD
     Route: 065
  2. PANTOPRAZOLE [Concomitant]
     Active Substance: PANTOPRAZOLE
     Dosage: 20 MG,QD
     Route: 065
  3. PREDNISOLONE. [Concomitant]
     Active Substance: PREDNISOLONE
     Dosage: 5 MG,QD
     Route: 065
  4. MYCOPHENOLATE MOFETIL. [Concomitant]
     Active Substance: MYCOPHENOLATE MOFETIL
     Dosage: 250 MG,BID
     Route: 065
  5. MYCOPHENOLATE MOFETIL. [Concomitant]
     Active Substance: MYCOPHENOLATE MOFETIL
     Dosage: 500 MG,QD
     Route: 065
  6. VALCYTE [Concomitant]
     Active Substance: VALGANCICLOVIR HYDROCHLORIDE
     Dosage: UNK UNK,UNK
     Route: 065
  7. AGALSIDASE BETA [Suspect]
     Active Substance: AGALSIDASE BETA
     Indication: FABRY^S DISEASE
     Dosage: .94 MG/KG,QOW
     Route: 041
     Dates: start: 20131201, end: 2016
  8. ESCITALOPRAM [Concomitant]
     Active Substance: ESCITALOPRAM OXALATE
     Dosage: 2 MG,QD
     Route: 065
  9. LEVETIRACETAM. [Concomitant]
     Active Substance: LEVETIRACETAM
     Indication: PROPHYLAXIS
     Dosage: 500 MG,BID
     Route: 065
  10. PANADEINE FORTE [Concomitant]
     Active Substance: ACETAMINOPHEN\CODEINE PHOSPHATE
     Dosage: UNK UNK,PRN
     Route: 065
  11. ISPAGHULA [Concomitant]
     Active Substance: PLANTAGO OVATA SEED
     Indication: PROPHYLAXIS
     Dosage: UNK UNK,UNK
     Route: 065
  12. ESCITALOPRAM [Concomitant]
     Active Substance: ESCITALOPRAM OXALATE
     Dosage: 10 MG,QD
     Route: 065
  13. LORATADINE. [Concomitant]
     Active Substance: LORATADINE
     Indication: PREMEDICATION
     Dosage: 10 MG,UNK
     Route: 048
  14. AGALSIDASE BETA [Suspect]
     Active Substance: AGALSIDASE BETA
     Dosage: .94 MG/KG,QOW
     Route: 041
     Dates: start: 2016
  15. TACROLIMUS. [Suspect]
     Active Substance: TACROLIMUS
     Indication: RENAL TRANSPLANT
     Dosage: UNK UNK,UNK
     Route: 065
  16. LEVETIRACETAM. [Concomitant]
     Active Substance: LEVETIRACETAM
     Dosage: 250 MG,UNK
     Route: 065
  17. AGALSIDASE ALFA [Concomitant]
     Active Substance: AGALSIDASE ALFA
     Dosage: UNK UNK,QOW
     Route: 065
  18. TACROLIMUS. [Suspect]
     Active Substance: TACROLIMUS
     Dosage: UNK UNK,UNK
     Route: 065
     Dates: start: 201708
  19. DILTIAZEM. [Concomitant]
     Active Substance: DILTIAZEM
     Dosage: 180 MG,QD
     Route: 065
  20. PREDNISOLONE. [Concomitant]
     Active Substance: PREDNISOLONE
     Dosage: 7.5 MG,QD
     Route: 065
  21. PROMETHAZINE [Concomitant]
     Active Substance: PROMETHAZINE\PROMETHAZINE HYDROCHLORIDE
     Dosage: 25 MG,UNK
     Route: 065
  22. PARACETAMOL [Concomitant]
     Active Substance: ACETAMINOPHEN
     Indication: PREMEDICATION
     Dosage: 1 G,UNK
     Route: 048
  23. AGALSIDASE BETA [Suspect]
     Active Substance: AGALSIDASE BETA
     Dosage: 1.04 UNK
     Route: 041
  24. ACETYLSALICYLIC ACID [Concomitant]
     Active Substance: ASPIRIN
     Dosage: 100 MG,QD
     Route: 065
  25. FISH OIL [Concomitant]
     Active Substance: FISH OIL
     Dosage: 1 G,QD
     Route: 065
  26. PRAVASTATIN. [Concomitant]
     Active Substance: PRAVASTATIN
     Dosage: 20 MG,QD
     Route: 065
  27. FAMOTIDINE. [Concomitant]
     Active Substance: FAMOTIDINE
     Dosage: 20 MG,QD
     Route: 065
  28. VALCYTE [Concomitant]
     Active Substance: VALGANCICLOVIR HYDROCHLORIDE
     Dosage: 450 MG,QD
     Route: 065
     Dates: start: 201507
  29. RISEDRONATE [Concomitant]
     Active Substance: RISEDRONATE SODIUM
     Dosage: 150 MG,QW
     Route: 065
  30. AGALSIDASE BETA [Suspect]
     Active Substance: AGALSIDASE BETA
     Dosage: 1.06 MG/KG, QOW
     Route: 041

REACTIONS (82)
  - Basal cell carcinoma [Not Recovered/Not Resolved]
  - Visual impairment [Unknown]
  - Sepsis [Unknown]
  - Body temperature decreased [Recovered/Resolved]
  - Cardiac valve disease [Unknown]
  - Localised infection [Recovered/Resolved]
  - Resting tremor [Unknown]
  - Tooth extraction [Unknown]
  - Blindness cortical [Unknown]
  - Vascular device infection [Recovered/Resolved]
  - Congestive cardiomyopathy [Recovered/Resolved with Sequelae]
  - Confusional state [Recovered/Resolved]
  - Haemorrhoids [Recovering/Resolving]
  - Urinary tract infection [Unknown]
  - Diarrhoea [Recovered/Resolved]
  - Sensory disturbance [Unknown]
  - Emphysema [Unknown]
  - Hoffmann^s sign [Unknown]
  - Restlessness [Unknown]
  - Blood creatinine increased [Unknown]
  - Angiogram [Unknown]
  - Dizziness postural [Unknown]
  - Apraxia [Unknown]
  - Hepatitis [Unknown]
  - Aortic stenosis [Not Recovered/Not Resolved]
  - Bradycardia [Recovered/Resolved]
  - Azotaemia [Recovering/Resolving]
  - Cellulitis [Recovered/Resolved]
  - Body temperature increased [Recovered/Resolved]
  - Haemoglobin decreased [Unknown]
  - Fungal skin infection [Unknown]
  - Rhinorrhoea [Recovering/Resolving]
  - Syncope [Unknown]
  - Cardiac stress test [Unknown]
  - Cytomegalovirus infection [Recovering/Resolving]
  - Balint^s syndrome [Unknown]
  - Visual agnosia [Unknown]
  - Acute kidney injury [Unknown]
  - Myocardial stunning [Recovered/Resolved with Sequelae]
  - Colitis [Unknown]
  - Liver function test abnormal [Unknown]
  - Fibrosis [Unknown]
  - Oropharyngeal pain [Recovered/Resolved]
  - Blood urea increased [Unknown]
  - Chest pain [Recovered/Resolved with Sequelae]
  - Dyspnoea [Recovered/Resolved with Sequelae]
  - Cardiac function test [Unknown]
  - Pain [Recovering/Resolving]
  - Urinary retention [Recovered/Resolved]
  - Rectal haemorrhage [Recovered/Resolved]
  - Fistula [Unknown]
  - Pollakiuria [Recovered/Resolved]
  - Stent placement [Unknown]
  - Diastolic dysfunction [Unknown]
  - Ataxia [Unknown]
  - Erythema [Recovered/Resolved]
  - Nasopharyngitis [Recovering/Resolving]
  - Herpes zoster [Recovered/Resolved]
  - Weight decreased [Unknown]
  - Coronary artery disease [Recovered/Resolved with Sequelae]
  - Cough [Not Recovered/Not Resolved]
  - Left ventricular hypertrophy [Not Recovered/Not Resolved]
  - Diarrhoea [Unknown]
  - Cardiac disorder [Unknown]
  - Condition aggravated [Unknown]
  - Abdominal distension [Unknown]
  - Skin lesion [Unknown]
  - Dysphonia [Recovering/Resolving]
  - Platelet count decreased [Unknown]
  - Anal haemorrhage [Recovered/Resolved]
  - Arteriosclerosis [Recovered/Resolved with Sequelae]
  - Left ventricular dysfunction [Recovered/Resolved with Sequelae]
  - Infarction [Recovered/Resolved with Sequelae]
  - Delirium [Unknown]
  - Neuralgia [Unknown]
  - Contusion [Unknown]
  - Pleural fibrosis [Unknown]
  - Tandem gait test abnormal [Unknown]
  - Animal bite [Recovered/Resolved]
  - Cardiac murmur [Unknown]
  - Skin disorder [Unknown]
  - Mean platelet volume increased [Unknown]

NARRATIVE: CASE EVENT DATE: 201312
